FAERS Safety Report 15964578 (Version 4)
Quarter: 2019Q2

REPORT INFORMATION
  Report Type: Spontaneous
  Country: US (occurrence: US)
  Receive Date: 20190215
  Receipt Date: 20190530
  Transmission Date: 20190711
  Serious: No
  Sender: FDA-Public Use
  Company Number: US-JNJFOC-20190135153

PATIENT
  Sex: Female
  Weight: 68.04 kg

DRUGS (2)
  1. WOMENS ROGAINE [Suspect]
     Active Substance: MINOXIDIL
     Indication: ACCIDENTAL EXPOSURE TO PRODUCT
     Dosage: 1 DROPPER WORTH.
     Route: 061
     Dates: start: 20190104
  2. WOMENS ROGAINE [Suspect]
     Active Substance: MINOXIDIL
     Indication: ALOPECIA
     Dosage: 1 DROPPER WORTH.
     Route: 061
     Dates: start: 20190104

REACTIONS (1)
  - Accidental exposure to product [Unknown]
